FAERS Safety Report 10086687 (Version 1)
Quarter: 2014Q2

REPORT INFORMATION
  Report Type: Spontaneous
  Country: US (occurrence: None)
  Receive Date: 20140417
  Receipt Date: 20140417
  Transmission Date: 20141212
  Serious: Yes (Other)
  Sender: FDA-Public Use
  Company Number: None

PATIENT
  Age: 64 Year
  Sex: Female

DRUGS (1)
  1. DULOXETINE [Suspect]
     Route: 048
     Dates: start: 20140403, end: 20140407

REACTIONS (6)
  - Stomatitis [None]
  - Constipation [None]
  - Nausea [None]
  - Headache [None]
  - Insomnia [None]
  - Product substitution issue [None]
